FAERS Safety Report 5680585-8 (Version None)
Quarter: 2008Q1

REPORT INFORMATION
  Report Type: 
  Country: None (occurrence: None)
  Receive Date: 20080326
  Receipt Date: 20080312
  Transmission Date: 20080703
  Serious: Yes (Hospitalization)
  Sender: FDA-Public Use
  Company Number: GB-GENENTECH-257839

PATIENT
  Sex: Male

DRUGS (4)
  1. AVASTIN [Suspect]
     Indication: DRUG USE FOR UNKNOWN INDICATION
  2. TARCEVA [Suspect]
     Indication: DRUG USE FOR UNKNOWN INDICATION
     Dates: start: 20080303
  3. GEMCITABINE [Concomitant]
     Indication: LUNG CANCER METASTATIC
  4. CARBOPLATIN [Concomitant]
     Indication: LUNG CANCER METASTATIC

REACTIONS (6)
  - HYPOTENSION [None]
  - LEUKOCYTOSIS [None]
  - LUNG CONSOLIDATION [None]
  - MUCOSAL INFLAMMATION [None]
  - PERIPHERAL CIRCULATORY FAILURE [None]
  - STOMATITIS [None]
